FAERS Safety Report 9142615 (Version 1)
Quarter: 2013Q1

REPORT INFORMATION
  Report Type: Spontaneous
  Country: LT (occurrence: LT)
  Receive Date: 20130306
  Receipt Date: 20130306
  Transmission Date: 20140127
  Serious: Yes (Other)
  Sender: FDA-Public Use
  Company Number: LT-JNJFOC-20130215726

PATIENT
  Age: 4 Decade
  Sex: Female

DRUGS (5)
  1. XEPLION [Suspect]
     Indication: SCHIZOPHRENIA
     Route: 030
     Dates: start: 20130128, end: 20130128
  2. XEPLION [Suspect]
     Indication: SCHIZOPHRENIA
     Route: 030
     Dates: start: 20121228, end: 20121228
  3. XEPLION [Suspect]
     Indication: SCHIZOPHRENIA
     Route: 030
     Dates: start: 20121130, end: 20121130
  4. XEPLION [Suspect]
     Indication: SCHIZOPHRENIA
     Route: 030
     Dates: start: 20121123, end: 20121123
  5. HALOPERIDOL [Concomitant]
     Route: 065
     Dates: end: 201211

REACTIONS (2)
  - Depression [Unknown]
  - Hypersensitivity [Unknown]
